FAERS Safety Report 4880302-5 (Version None)
Quarter: 2006Q1

REPORT INFORMATION
  Report Type: 
  Country: None (occurrence: None)
  Receive Date: 20060113
  Receipt Date: 20060104
  Transmission Date: 20060701
  Serious: Yes (Other)
  Sender: FDA-Public Use
  Company Number: GB-ROCHE-430852

PATIENT
  Age: 47 Year
  Sex: Female

DRUGS (2)
  1. CYMEVENE [Suspect]
     Route: 065
  2. CYMEVENE [Suspect]
     Route: 065

REACTIONS (1)
  - DEAFNESS [None]
